FAERS Safety Report 13844797 (Version 2)
Quarter: 2017Q3

REPORT INFORMATION
  Report Type: Spontaneous
  Country: US (occurrence: US)
  Receive Date: 20170808
  Receipt Date: 20170809
  Transmission Date: 20171127
  Serious: No
  Sender: FDA-Public Use
  Company Number: US-PFIZER INC-2017338437

PATIENT
  Age: 31 Year
  Sex: Female
  Weight: 63.5 kg

DRUGS (6)
  1. HYDROCODONE [Concomitant]
     Active Substance: HYDROCODONE
     Indication: PAIN
     Dosage: 5-325MG TABLET PRN [HYDRACODONE, 5MG]/[ACETAMINOPHEN, 325MG]
     Dates: start: 2016
  2. GABAPENTIN. [Suspect]
     Active Substance: GABAPENTIN
     Indication: NEURALGIA
     Dosage: SHE USE TO TAKE 200MG OR 100MG
  3. GABAPENTIN. [Suspect]
     Active Substance: GABAPENTIN
     Dosage: 100 MG, 3X/DAY
     Dates: start: 2017, end: 20170801
  4. ALBUTEROL. [Concomitant]
     Active Substance: ALBUTEROL
     Indication: ASTHMA
     Dosage: INHALER FOUR TIMES A DAY; EVERY 6 HOURS PRN
  5. FLONASE [Concomitant]
     Active Substance: FLUTICASONE PROPIONATE
     Indication: RHINITIS ALLERGIC
     Dosage: 50 UG, 2X/DAY(50MCG TWICE A DAY ONE SPRAY EACH NOSTRIL)
     Dates: start: 2015
  6. BENADRYL [Concomitant]
     Active Substance: DIPHENHYDRAMINE HYDROCHLORIDE
     Indication: HYPERSENSITIVITY
     Dosage: 12.5MG/5ML; TAKE TOTAL 15ML ONCE A DAY

REACTIONS (9)
  - Drug ineffective for unapproved indication [Unknown]
  - Impaired work ability [Unknown]
  - Intentional product misuse [Unknown]
  - Pain [Not Recovered/Not Resolved]
  - Fatigue [Unknown]
  - Peripheral swelling [Unknown]
  - Condition aggravated [Not Recovered/Not Resolved]
  - Somnolence [Unknown]
  - Joint swelling [Unknown]

NARRATIVE: CASE EVENT DATE: 201706
